FAERS Safety Report 5956130-6 (Version None)
Quarter: 2008Q4

REPORT INFORMATION
  Report Type: 
  Country: None (occurrence: None)
  Receive Date: 20081112
  Receipt Date: 20081107
  Transmission Date: 20090506
  Serious: Yes (Hospitalization)
  Sender: FDA-Public Use
  Company Number: APP200801098

PATIENT
  Age: 47 Year
  Sex: Female

DRUGS (2)
  1. HEPARIN SODIUM INJECTION [Suspect]
     Indication: PHOTOPHERESIS
     Dosage: 300 ML, 1 IN 1 D, INTRAVENOUS
     Route: 042
     Dates: start: 20081002, end: 20081003
  2. UVAR XTS - PHOTOPHERESIS KIT [Suspect]
     Indication: PHOTOPHERESIS
     Dates: start: 20081002, end: 20081003

REACTIONS (4)
  - ACTIVATED PARTIAL THROMBOPLASTIN TIME PROLONGED [None]
  - CATHETER SITE HAEMATOMA [None]
  - CATHETER SITE HAEMORRHAGE [None]
  - HAEMATURIA [None]
